FAERS Safety Report 12596273 (Version 2)
Quarter: 2016Q4

REPORT INFORMATION
  Report Type: Spontaneous
  Country: JP (occurrence: JP)
  Receive Date: 20160727
  Receipt Date: 20161025
  Transmission Date: 20170207
  Serious: Yes (Hospitalization, Other)
  Sender: FDA-Public Use
  Company Number: JP-009507513-1607JPN009742

PATIENT
  Age: 75 Year
  Sex: Male
  Weight: 64 kg

DRUGS (6)
  1. JANUVIA [Suspect]
     Active Substance: SITAGLIPTIN PHOSPHATE
     Indication: BLOOD GLUCOSE INCREASED
     Dosage: 50 MG, QD
     Route: 048
     Dates: start: 20160218, end: 20160303
  2. ENALAPRIL MALEATE. [Concomitant]
     Active Substance: ENALAPRIL MALEATE
     Dosage: DAILY DOSAGE UNKNOWN
     Route: 048
  3. LANSOPRAZOLE. [Concomitant]
     Active Substance: LANSOPRAZOLE
     Dosage: DAILY DOSAGE UNKNOWN
     Route: 048
  4. PREDNISOLONE. [Concomitant]
     Active Substance: PREDNISOLONE
     Indication: CASTLEMAN^S DISEASE
     Dosage: 15 MG, BID
     Route: 048
  5. SENNOSIDES. [Concomitant]
     Active Substance: SENNOSIDES
     Dosage: DAILY DOSE UNKNOWN; PERORAL FORMULATION
     Route: 048
  6. BACTRAMIN [Concomitant]
     Active Substance: SULFAMETHOXAZOLE\TRIMETHOPRIM
     Dosage: DAILY DOSAGE UNKNOWN
     Route: 048

REACTIONS (1)
  - Neutropenia [Recovered/Resolved]

NARRATIVE: CASE EVENT DATE: 20160303
